FAERS Safety Report 17079221 (Version 2)
Quarter: 2020Q2

REPORT INFORMATION
  Report Type: Spontaneous
  Country: US (occurrence: US)
  Receive Date: 20191127
  Receipt Date: 20200526
  Transmission Date: 20200713
  Serious: No
  Sender: FDA-Public Use
  Company Number: US-UCBSA-2019007061

PATIENT
  Age: 32 Year
  Sex: Male

DRUGS (1)
  1. CIMZIA [Suspect]
     Active Substance: CERTOLIZUMAB PEGOL
     Indication: ANKYLOSING SPONDYLITIS
     Dosage: 400 MG/ML
     Dates: start: 20181201

REACTIONS (3)
  - Product dose omission [Unknown]
  - Nervousness [Unknown]
  - Condition aggravated [Unknown]

NARRATIVE: CASE EVENT DATE: 20181229
